FAERS Safety Report 5362779-4 (Version None)
Quarter: 2007Q2

REPORT INFORMATION
  Report Type: 
  Country: None (occurrence: None)
  Receive Date: 20070612
  Receipt Date: 20070531
  Transmission Date: 20071010
  Serious: Yes (Hospitalization)
  Sender: FDA-Public Use
  Company Number: 20070146

PATIENT
  Age: 24 Year
  Sex: Female

DRUGS (1)
  1. VENOFER [Suspect]
     Indication: ANAEMIA OF PREGNANCY
     Dosage: 100 MG INTRAVENOUS
     Route: 042
     Dates: start: 20070506, end: 20070506

REACTIONS (1)
  - PHLEBITIS [None]
